FAERS Safety Report 13004281 (Version 1)
Quarter: 2016Q4

REPORT INFORMATION
  Report Type: Spontaneous
  Country: US (occurrence: US)
  Receive Date: 20161206
  Receipt Date: 20161206
  Transmission Date: 20170207
  Serious: No
  Sender: FDA-Public Use
  Company Number: US-BIOGEN-2016BI00324413

PATIENT
  Age: 60 Year
  Sex: Female

DRUGS (1)
  1. AVONEX [Suspect]
     Active Substance: INTERFERON BETA-1A
     Indication: MULTIPLE SCLEROSIS
     Route: 030

REACTIONS (4)
  - Gastroenteritis [Recovered/Resolved]
  - Inappropriate schedule of drug administration [Recovered/Resolved]
  - Pain [Recovered/Resolved]
  - Fatigue [Recovered/Resolved]

NARRATIVE: CASE EVENT DATE: 20161122
